FAERS Safety Report 5113994-6 (Version None)
Quarter: 2006Q3

REPORT INFORMATION
  Report Type: 
  Country: None (occurrence: None)
  Receive Date: 20060925
  Receipt Date: 20060725
  Transmission Date: 20061208
  Serious: Yes (Other)
  Sender: FDA-Public Use
  Company Number: PHNU2006DE02620

PATIENT
  Age: 71 Year
  Sex: Male

DRUGS (7)
  1. GLEEVEC [Suspect]
     Indication: GASTROINTESTINAL STROMAL TUMOUR
     Dosage: 400 MG/DAY
     Route: 048
     Dates: start: 20051101, end: 20060717
  2. GLEEVEC [Suspect]
     Dosage: 600 MG/DAY
     Route: 048
     Dates: start: 20060718, end: 20060807
  3. GLEEVEC [Suspect]
     Dosage: 800 MG/DAY
     Route: 048
     Dates: start: 20060808
  4. L-THYROXINE [Concomitant]
     Dosage: 150 A?G/DAY
     Route: 048
  5. HYDROCHLOROTHIAZIDE [Concomitant]
     Dosage: 12.5 MG/DAY
     Route: 048
  6. DOXEPIN [Concomitant]
     Dosage: 50 MG/DAY
     Route: 048
  7. METOPROLOL [Concomitant]
     Dosage: 190 MG/DAY
     Route: 048

REACTIONS (6)
  - ACUTE CORONARY SYNDROME [None]
  - BLOOD CREATINE PHOSPHOKINASE INCREASED [None]
  - CORONARY ARTERIAL STENT INSERTION [None]
  - CORONARY ARTERY OCCLUSION [None]
  - MYOCARDIAL INFARCTION [None]
  - TROPONIN INCREASED [None]
